FAERS Safety Report 5370423-5 (Version None)
Quarter: 2007Q2

REPORT INFORMATION
  Report Type: 
  Country: None (occurrence: None)
  Receive Date: 20070625
  Receipt Date: 20070625
  Transmission Date: 20071010
  Serious: Yes (Hospitalization)
  Sender: FDA-Public Use
  Company Number: None

PATIENT
  Sex: Female
  Weight: 54.4316 kg

DRUGS (1)
  1. BUTORPHANOL TARTRATE [Suspect]
     Indication: PRURITUS
     Dosage: ONE SPRAY 1 MG WAS TOLD TO USE IT FOR 11 DAYS
     Dates: start: 20070318

REACTIONS (11)
  - ABASIA [None]
  - ANXIETY [None]
  - ASTHENIA [None]
  - BLOOD PRESSURE INCREASED [None]
  - DIZZINESS [None]
  - DRY MOUTH [None]
  - DYSPNOEA [None]
  - EYE DISORDER [None]
  - HEART RATE INCREASED [None]
  - NAUSEA [None]
  - VISION BLURRED [None]
